FAERS Safety Report 9708513 (Version 1)
Quarter: 2013Q4

REPORT INFORMATION
  Report Type: Spontaneous
  Country: DE (occurrence: DE)
  Receive Date: 20131125
  Receipt Date: 20131125
  Transmission Date: 20140711
  Serious: Yes (Disabling)
  Sender: FDA-Public Use
  Company Number: DE-TEVA-445375GER

PATIENT
  Age: 85 Year
  Sex: Female
  Weight: 45 kg

DRUGS (8)
  1. LEVOFLOXACIN [Suspect]
     Indication: CHRONIC OBSTRUCTIVE PULMONARY DISEASE
     Route: 048
     Dates: start: 20131004, end: 20131005
  2. SIMVASTATIN 20 [Concomitant]
     Indication: ARTERIAL OCCLUSIVE DISEASE
     Route: 048
  3. PREDNISOLON [Concomitant]
     Indication: CHRONIC OBSTRUCTIVE PULMONARY DISEASE
     Route: 048
     Dates: start: 20131004, end: 20131008
  4. CANDESARTAN [Concomitant]
     Indication: HYPERTENSION
     Route: 048
  5. ASS 100 [Concomitant]
     Indication: ARTERIAL OCCLUSIVE DISEASE
     Route: 048
  6. OMEPRAZOL 20 [Concomitant]
     Indication: GASTRITIS
     Route: 048
  7. TARGIN 5/2,5 [Concomitant]
     Indication: BACK PAIN
     Dosage: 5/2,5 1-2 DAILY
     Route: 048
  8. INUVAIR [Concomitant]
     Indication: CHRONIC OBSTRUCTIVE PULMONARY DISEASE
     Dosage: 100/6?G 2X2 PUFFS
     Route: 055

REACTIONS (7)
  - Venous thrombosis limb [Not Recovered/Not Resolved]
  - Tendon rupture [Not Recovered/Not Resolved]
  - Arthralgia [Not Recovered/Not Resolved]
  - Gait disturbance [Not Recovered/Not Resolved]
  - Muscle spasms [Not Recovered/Not Resolved]
  - Myalgia [Not Recovered/Not Resolved]
  - Swelling [Not Recovered/Not Resolved]
